FAERS Safety Report 21075786 (Version 1)
Quarter: 2022Q3

REPORT INFORMATION
  Report Type: Spontaneous
  Country: US (occurrence: None)
  Receive Date: 20220712
  Receipt Date: 20220712
  Transmission Date: 20221026
  Serious: Yes (Other)
  Sender: FDA-Public Use
  Company Number: None

PATIENT
  Age: 4 Year
  Sex: Male
  Weight: 16.2 kg

DRUGS (4)
  1. MONTELUKAST [Suspect]
     Active Substance: MONTELUKAST SODIUM
     Indication: Asthma
  2. MONTELUKAST [Suspect]
     Active Substance: MONTELUKAST SODIUM
     Indication: Multiple allergies
  3. Symbicort daily for asthma [Concomitant]
  4. Ventolin as needed [Concomitant]

REACTIONS (5)
  - Aggression [None]
  - Mood swings [None]
  - Depression [None]
  - Intentional self-injury [None]
  - Head injury [None]

NARRATIVE: CASE EVENT DATE: 20220707
